FAERS Safety Report 16306102 (Version 1)
Quarter: 2019Q2

REPORT INFORMATION
  Report Type: Spontaneous
  Country: US (occurrence: US)
  Receive Date: 20190406
  Receipt Date: 20190406
  Transmission Date: 20190711
  Serious: Yes (Hospitalization)
  Sender: FDA-Public Use
  Company Number: None

PATIENT
  Age: 66 Year
  Sex: Female
  Weight: 76.1 kg

DRUGS (4)
  1. METHOTREXATE. [Suspect]
     Active Substance: METHOTREXATE
     Dates: end: 20190214
  2. CYCLOPHOSPHAMIDE. [Suspect]
     Active Substance: CYCLOPHOSPHAMIDE
     Dates: end: 20190219
  3. CYTARABINE. [Suspect]
     Active Substance: CYTARABINE
     Dates: end: 20190315
  4. MERCAPTOPURINE. [Suspect]
     Active Substance: MERCAPTOPURINE
     Dates: end: 20190320

REACTIONS (6)
  - Febrile neutropenia [None]
  - Lung infection [None]
  - Fusobacterium infection [None]
  - Organising pneumonia [None]
  - Lung neoplasm [None]
  - Pulmonary mass [None]

NARRATIVE: CASE EVENT DATE: 20190325
